FAERS Safety Report 8927051 (Version 1)
Quarter: 2012Q4

REPORT INFORMATION
  Report Type: 
  Country: FR (occurrence: FR)
  Receive Date: 20121127
  Receipt Date: 20121127
  Transmission Date: 20130627
  Serious: Yes (Hospitalization, Other)
  Sender: FDA-Public Use
  Company Number: FR-PFIZER INC-2012293443

PATIENT
  Age: 76 Year
  Sex: Female

DRUGS (7)
  1. AMLOR [Suspect]
     Dosage: 5 mg, 1x/day
     Route: 048
     Dates: end: 20120924
  2. BISOPROLOL [Concomitant]
     Dosage: 10 mg
  3. PREVISCAN [Concomitant]
     Dosage: 20 mg
     Route: 048
  4. AERIUS [Concomitant]
     Route: 048
  5. IMOVANE [Concomitant]
     Dosage: 7.5 mg
     Route: 048
  6. UVEDOSE [Concomitant]
  7. MOVICOL [Concomitant]
     Route: 048

REACTIONS (3)
  - Oedema peripheral [Unknown]
  - Renal failure [Unknown]
  - Pyelonephritis acute [Unknown]
